FAERS Safety Report 6031689-1 (Version None)
Quarter: 2009Q1

REPORT INFORMATION
  Report Type: 
  Country: None (occurrence: None)
  Receive Date: 20090108
  Receipt Date: 20090105
  Transmission Date: 20090719
  Serious: Yes (Other)
  Sender: FDA-Public Use
  Company Number: A0752800A

PATIENT
  Age: 75 Year
  Sex: Female

DRUGS (3)
  1. ADVAIR DISKUS 250/50 [Suspect]
     Indication: CHRONIC OBSTRUCTIVE PULMONARY DISEASE
     Dosage: 1PUFF TWICE PER DAY
     Route: 055
     Dates: start: 20080101
  2. SPIRIVA [Concomitant]
  3. LEVOTHROID [Concomitant]

REACTIONS (1)
  - MACULAR DEGENERATION [None]
